FAERS Safety Report 7052581-X (Version None)
Quarter: 2010Q4

REPORT INFORMATION
  Report Type: 
  Country: None (occurrence: None)
  Receive Date: 20101019
  Receipt Date: 20101012
  Transmission Date: 20110411
  Serious: Yes (Hospitalization)
  Sender: FDA-Public Use
  Company Number: US-US-EMD SERONO, INC.-7019865

PATIENT
  Sex: Male

DRUGS (7)
  1. REBIF [Suspect]
     Indication: MULTIPLE SCLEROSIS
     Route: 058
     Dates: start: 20100831
  2. DEPAKOTE [Concomitant]
     Indication: CONVULSION
  3. DILANTIN [Concomitant]
     Indication: CONVULSION
  4. VITAMINS [Concomitant]
  5. POTASSIUM [Concomitant]
  6. UNSPECIFIED MEDICATION [Concomitant]
     Indication: DEPRESSION
  7. UNSPECIFIED MEDICATION [Concomitant]

REACTIONS (3)
  - DIPLOPIA [None]
  - INFLUENZA LIKE ILLNESS [None]
  - PNEUMONIA [None]
